FAERS Safety Report 7420847-7 (Version None)
Quarter: 2011Q2

REPORT INFORMATION
  Report Type: 
  Country: None (occurrence: None)
  Receive Date: 20110418
  Receipt Date: 20110405
  Transmission Date: 20111010
  Serious: Yes (Other)
  Sender: FDA-Public Use
  Company Number: PHHY2011JP29399

PATIENT
  Sex: Male

DRUGS (11)
  1. FERROUS CITRATE [Concomitant]
     Dosage: 50 MG, UNK
     Route: 048
     Dates: start: 20101227
  2. ALLELOCK [Concomitant]
     Dosage: 10 MG, UNK
     Route: 048
     Dates: start: 20101227
  3. UNISIA [Suspect]
     Dosage: 1 DF, UNK
     Route: 048
     Dates: start: 20101227
  4. DISOPYRAMIDE PHOSPHATE [Concomitant]
     Dosage: 150 MG, UNK
     Route: 048
     Dates: start: 20101227
  5. RESTAMIN [Concomitant]
     Dosage: 30 MG,
     Route: 048
     Dates: start: 20101227
  6. RESTAMIN [Concomitant]
     Dosage: 10 MG,
     Route: 048
  7. TAKEPRON [Concomitant]
     Dosage: 15 MG, UNK
     Route: 048
     Dates: start: 20101227
  8. AFINITOR [Suspect]
     Indication: METASTATIC RENAL CELL CARCINOMA
     Dosage: 5 MG,
     Route: 048
     Dates: start: 20101227
  9. SUNITINIB MALATE [Concomitant]
     Indication: METASTATIC RENAL CELL CARCINOMA
     Dosage: 50 MG, UNK
     Route: 048
     Dates: start: 20090826, end: 20100228
  10. SORAFENIB TOSILATE [Concomitant]
     Indication: METASTATIC RENAL CELL CARCINOMA
     Dosage: 400 MG, UNK
     Route: 048
     Dates: start: 20100301, end: 20101130
  11. URIEF [Concomitant]
     Dosage: 8 MG, UNK
     Route: 048
     Dates: start: 20101227

REACTIONS (2)
  - BLOOD GLUCOSE INCREASED [None]
  - GAMMA-GLUTAMYLTRANSFERASE INCREASED [None]
